FAERS Safety Report 8589878 (Version 2)
Quarter: 2013Q2

REPORT INFORMATION
  Report Type: Report from Study
  Country: MX (occurrence: MX)
  Receive Date: 20120601
  Receipt Date: 20130502
  Transmission Date: 20140414
  Serious: Yes (Death, Other)
  Sender: FDA-Public Use
  Company Number: PHHY2012MX045929

PATIENT
  Age: 23 Year
  Sex: Female

DRUGS (2)
  1. GLIVEC [Suspect]
     Indication: ACUTE LYMPHOCYTIC LEUKAEMIA
     Dosage: 600 MG, UNK
     Dates: start: 20101112
  2. CHEMOTHERAPEUTICS [Suspect]

REACTIONS (2)
  - Death [Fatal]
  - Coma [Unknown]
